FAERS Safety Report 13359517 (Version 2)
Quarter: 2017Q1

REPORT INFORMATION
  Report Type: Spontaneous
  Country: RU (occurrence: RU)
  Receive Date: 20170322
  Receipt Date: 20170329
  Transmission Date: 20170429
  Serious: Yes (Death)
  Sender: FDA-Public Use
  Company Number: PHHY2017RU043057

PATIENT
  Age: 40 Year
  Sex: Female

DRUGS (1)
  1. LAPATINIB [Suspect]
     Active Substance: LAPATINIB
     Indication: BREAST CANCER FEMALE
     Dosage: UNK
     Route: 065
     Dates: start: 201702

REACTIONS (3)
  - Breast cancer [Fatal]
  - Embolism [Fatal]
  - Malignant neoplasm progression [Fatal]

NARRATIVE: CASE EVENT DATE: 20170315
